FAERS Safety Report 20684731 (Version 1)
Quarter: 2022Q2

REPORT INFORMATION
  Report Type: Spontaneous
  Country: HR (occurrence: HR)
  Receive Date: 20220407
  Receipt Date: 20220407
  Transmission Date: 20220721
  Serious: Yes (Other)
  Sender: FDA-Public Use
  Company Number: None

PATIENT
  Age: 16 Year
  Sex: Female

DRUGS (4)
  1. ARIPIPRAZOLE [Suspect]
     Active Substance: ARIPIPRAZOLE
     Dosage: UNIT DOSE: 10 MG, FREQUENCY TIME- 1 DAY, DURATION-1 DAYS
     Route: 048
     Dates: start: 20211128, end: 20211128
  2. ZOLOFT [Suspect]
     Active Substance: SERTRALINE HYDROCHLORIDE
     Dosage: UNIT DOSE: 750 MG, FREQUENCY TIME- 1 DAY, DURATION-1 DAYS
     Route: 048
     Dates: start: 20211128, end: 20211128
  3. CLOZAPINE [Suspect]
     Active Substance: CLOZAPINE
     Dosage: UNIT DOSE: 150 MG, FREQUENCY TIME- 1 DAY, DURATION-1 DAYS
     Route: 048
     Dates: start: 20211128, end: 20211128
  4. QUETIAPINE FUMARATE [Suspect]
     Active Substance: QUETIAPINE FUMARATE
     Dosage: UNIT DOSE: 800 MG, FREQUENCY TIME- 1 DAY, DURATION-1 DAYS
     Route: 048
     Dates: start: 20211128, end: 20211128

REACTIONS (3)
  - Somnolence [Unknown]
  - Suicide attempt [Unknown]
  - Intentional overdose [Unknown]

NARRATIVE: CASE EVENT DATE: 20211128
